FAERS Safety Report 8210507-7 (Version None)
Quarter: 2012Q1

REPORT INFORMATION
  Report Type: 
  Country: None (occurrence: None)
  Receive Date: 20120314
  Receipt Date: 20110325
  Transmission Date: 20120608
  Serious: No
  Sender: FDA-Public Use
  Company Number: US-ASTRAZENECA-2011SE17224

PATIENT
  Age: 65 Year
  Sex: Female

DRUGS (4)
  1. METOPROLOL SUCCINATE [Suspect]
     Indication: ATRIAL FIBRILLATION
     Route: 048
     Dates: start: 20100729, end: 20110301
  2. ASPIRIN [Concomitant]
  3. METOPROLOL SUCCINATE [Suspect]
     Route: 048
     Dates: start: 20110301
  4. METOPROLOL SUCCINATE [Suspect]
     Route: 048

REACTIONS (3)
  - DARK CIRCLES UNDER EYES [None]
  - WEIGHT INCREASED [None]
  - ALOPECIA [None]
